FAERS Safety Report 14409726 (Version 1)
Quarter: 2018Q1

REPORT INFORMATION
  Report Type: Spontaneous
  Country: BR (occurrence: BR)
  Receive Date: 20180119
  Receipt Date: 20180119
  Transmission Date: 20180509
  Serious: Yes (Other)
  Sender: FDA-Public Use
  Company Number: BR-TORRENT-00004238

PATIENT
  Age: 68 Year
  Sex: Female
  Weight: 70 kg

DRUGS (11)
  1. SINVASTACOR [Concomitant]
     Active Substance: SIMVASTATIN
     Indication: HEPATIC STEATOSIS
     Route: 048
     Dates: start: 2003, end: 201705
  2. BENICAR [Concomitant]
     Active Substance: OLMESARTAN MEDOXOMIL
     Indication: HYPERTENSION
     Dates: start: 2012
  3. PANTOPRAZOL [Suspect]
     Active Substance: PANTOPRAZOLE SODIUM
     Indication: GASTRIC DISORDER
     Dates: start: 201709
  4. GLIFAGE [Concomitant]
     Active Substance: METFORMIN HYDROCHLORIDE
     Indication: DIABETES MELLITUS
     Dates: start: 2003
  5. ROSUCOR [Suspect]
     Active Substance: ROSUVASTATIN CALCIUM
     Indication: HEPATIC STEATOSIS
     Dosage: 10 MG ONE TABLET DAILY/ORAL F
     Route: 048
     Dates: start: 201705, end: 20171224
  6. MELATONIN [Concomitant]
     Active Substance: MELATONIN
     Indication: PANIC ATTACK
     Dosage: ONE TABLET AT NIGHT FOR PANIC CRISIS SINCE 12/2017
     Dates: start: 201712
  7. AZUKON MR [Suspect]
     Active Substance: GLICLAZIDE
     Indication: DIABETES MELLITUS
     Dosage: TWO TABLETS DAILY IN MORNING
     Route: 048
     Dates: start: 201701
  8. PANTOCAL [Concomitant]
     Indication: GASTRIC DISORDER
     Dates: start: 2003, end: 201709
  9. AZULFIDINE [Concomitant]
     Active Substance: SULFASALAZINE
     Indication: RHEUMATOID ARTHRITIS
     Route: 048
     Dates: start: 1998
  10. FLANCOX [Concomitant]
     Active Substance: ETODOLAC
     Indication: ARTHRITIS
     Dosage: ONE TABLET FOR ARTHRITIS PAIN SINCE 2003
     Dates: start: 2003
  11. RIVOTRIL [Concomitant]
     Active Substance: CLONAZEPAM
     Indication: PANIC ATTACK
     Dosage: 10 DROPS AT NIGHT
     Route: 048
     Dates: start: 2003

REACTIONS (4)
  - Rash [Recovering/Resolving]
  - Tooth discolouration [Recovering/Resolving]
  - Pruritus [Recovered/Resolved]
  - Thyroid cancer [Recovered/Resolved]

NARRATIVE: CASE EVENT DATE: 201707
